FAERS Safety Report 4828207-X (Version None)
Quarter: 2005Q4

REPORT INFORMATION
  Report Type: 
  Country: None (occurrence: None)
  Receive Date: 20051115
  Receipt Date: 20051110
  Transmission Date: 20060501
  Serious: Yes (Hospitalization)
  Sender: FDA-Public Use
  Company Number: JP-JPN-A20052718

PATIENT
  Age: 53 Year
  Sex: Female

DRUGS (4)
  1. VALTREX [Suspect]
     Indication: HERPES ZOSTER
     Dosage: 1000MG THREE TIMES PER DAY
     Route: 048
  2. BANAN [Suspect]
     Route: 065
  3. LOXONIN [Suspect]
     Route: 048
  4. DASEN [Suspect]
     Route: 048

REACTIONS (1)
  - OEDEMA [None]
